FAERS Safety Report 11042891 (Version 2)
Quarter: 2015Q3

REPORT INFORMATION
  Report Type: Report from Study
  Country: BR (occurrence: BR)
  Receive Date: 20150417
  Receipt Date: 20150727
  Transmission Date: 20151125
  Serious: Yes (Other)
  Sender: FDA-Public Use
  Company Number: BR-ABBVIE-15K-020-1376670-00

PATIENT
  Sex: Female
  Weight: 105 kg

DRUGS (6)
  1. TECNOMET [Suspect]
     Active Substance: METHOTREXATE
     Indication: PSORIATIC ARTHROPATHY
     Route: 048
     Dates: start: 2007, end: 201412
  2. HUMIRA [Suspect]
     Active Substance: ADALIMUMAB
     Indication: PSORIATIC ARTHROPATHY
     Route: 058
     Dates: start: 20070101
  3. TECNOMET [Suspect]
     Active Substance: METHOTREXATE
     Route: 048
     Dates: start: 201412
  4. ENDOFOLIN [Concomitant]
     Active Substance: FOLIC ACID
     Indication: PROPHYLAXIS
     Route: 048
     Dates: start: 2007
  5. ENDOFOLIN [Concomitant]
     Active Substance: FOLIC ACID
     Indication: LIVER DISORDER
  6. TECNOMET [Suspect]
     Active Substance: METHOTREXATE
     Dosage: LESS THAN 10MG PER WEEK
     Route: 048
     Dates: end: 201412

REACTIONS (4)
  - Psoriasis [Recovered/Resolved]
  - Abdominal hernia [Not Recovered/Not Resolved]
  - Postoperative hernia [Recovered/Resolved]
  - Uterine leiomyoma [Recovered/Resolved]

NARRATIVE: CASE EVENT DATE: 2012
